FAERS Safety Report 4866339-0 (Version None)
Quarter: 2005Q4

REPORT INFORMATION
  Report Type: 
  Country: None (occurrence: None)
  Receive Date: 20051221
  Receipt Date: 20051208
  Transmission Date: 20060501
  Serious: Yes (Hospitalization, Other)
  Sender: FDA-Public Use
  Company Number: 197896

PATIENT
  Age: 53 Year
  Sex: Female

DRUGS (4)
  1. AVONEX [Suspect]
     Indication: MULTIPLE SCLEROSIS
     Dosage: 30 UG;QW;IM
     Route: 030
     Dates: start: 20020102, end: 20031001
  2. AVONEX [Suspect]
     Indication: MULTIPLE SCLEROSIS
     Dosage: 30 UG;QW;IM
     Route: 030
     Dates: start: 20031001
  3. VIOXX [Concomitant]
  4. DIAZEPAM [Concomitant]

REACTIONS (10)
  - BREAST CANCER FEMALE [None]
  - ERYTHEMA [None]
  - FATIGUE [None]
  - HEPATIC LESION [None]
  - LYMPHOMA [None]
  - MIGRAINE [None]
  - RECURRENT CANCER [None]
  - SHOULDER PAIN [None]
  - SKIN LESION [None]
  - TENDON CALCIFICATION [None]
